FAERS Safety Report 23280476 (Version 1)
Quarter: 2023Q4

REPORT INFORMATION
  Report Type: Other
  Country: US (occurrence: None)
  Receive Date: 20231211
  Receipt Date: 20231211
  Transmission Date: 20240110
  Serious: No
  Sender: FDA-Public Use
  Company Number: US-ROCHE-3468125

PATIENT
  Age: 58 Year
  Sex: Female
  Weight: 62.652 kg

DRUGS (1)
  1. OCREVUS [Suspect]
     Active Substance: OCRELIZUMAB
     Indication: Multiple sclerosis
     Dosage: INFUSE 300 MG ON DAY 1 AND DAY 15
     Route: 042

REACTIONS (3)
  - COVID-19 [Recovered/Resolved]
  - Multiple sclerosis [Not Recovered/Not Resolved]
  - Balance disorder [Unknown]

NARRATIVE: CASE EVENT DATE: 20210101
